FAERS Safety Report 17947944 (Version 1)
Quarter: 2020Q2

REPORT INFORMATION
  Report Type: Spontaneous
  Country: US (occurrence: US)
  Receive Date: 20200625
  Receipt Date: 20200625
  Transmission Date: 20200714
  Serious: No
  Sender: FDA-Public Use
  Company Number: None

PATIENT
  Age: 52 Year
  Sex: Female

DRUGS (1)
  1. ALBUTEROL HFA [Suspect]
     Active Substance: ALBUTEROL SULFATE

REACTIONS (2)
  - Product odour abnormal [None]
  - Device difficult to use [None]

NARRATIVE: CASE EVENT DATE: 20200624
